FAERS Safety Report 20933600 (Version 1)
Quarter: 2022Q2

REPORT INFORMATION
  Report Type: Spontaneous
  Country: US (occurrence: None)
  Receive Date: 20220608
  Receipt Date: 20220608
  Transmission Date: 20220720
  Serious: Yes (Hospitalization)
  Sender: FDA-Public Use
  Company Number: 2022A205182

PATIENT
  Age: 25458 Day
  Sex: Female
  Weight: 77.1 kg

DRUGS (2)
  1. BRILINTA [Suspect]
     Active Substance: TICAGRELOR
     Indication: Cerebrovascular accident
     Dosage: 60 MG BID
     Route: 048
  2. ASPIRIIN [Concomitant]

REACTIONS (8)
  - Cerebrovascular accident [Unknown]
  - Osteoporosis [Unknown]
  - Pain [Unknown]
  - Rheumatoid arthritis [Unknown]
  - Multiple sclerosis [Unknown]
  - Dyspnoea [Unknown]
  - Memory impairment [Unknown]
  - Product dose omission issue [Recovered/Resolved]

NARRATIVE: CASE EVENT DATE: 20220523
